FAERS Safety Report 8831991 (Version 1)
Quarter: 2012Q4

REPORT INFORMATION
  Report Type: 
  Country: CZ (occurrence: CZ)
  Receive Date: 20121009
  Receipt Date: 20121009
  Transmission Date: 20130627
  Serious: Yes (Other)
  Sender: FDA-Public Use
  Company Number: CZ-ROCHE-1140659

PATIENT

DRUGS (3)
  1. VALCYTE [Suspect]
     Indication: ANTIVIRAL PROPHYLAXIS
     Route: 065
  2. VALCYTE [Suspect]
     Dosage: for 3 months beginning day 7 post transplant at the latest
     Route: 065
  3. CELLCEPT [Suspect]
     Indication: PROPHYLAXIS AGAINST TRANSPLANT REJECTION

REACTIONS (6)
  - Cytomegalovirus infection [Unknown]
  - Sepsis [Unknown]
  - Neoplasm [Unknown]
  - Gastrointestinal toxicity [Unknown]
  - Pneumonia [Unknown]
  - Polyomavirus-associated nephropathy [Unknown]
